FAERS Safety Report 18446311 (Version 1)
Quarter: 2020Q4

REPORT INFORMATION
  Report Type: Spontaneous
  Country: US (occurrence: US)
  Receive Date: 20201030
  Receipt Date: 20201030
  Transmission Date: 20210114
  Serious: No
  Sender: FDA-Public Use
  Company Number: US-PFIZER INC-2020420494

PATIENT
  Age: 61 Year
  Sex: Female
  Weight: 53.11 kg

DRUGS (5)
  1. IBRANCE [Suspect]
     Active Substance: PALBOCICLIB
     Indication: METASTASES TO LIVER
  2. MOTRIN IB [Concomitant]
     Active Substance: IBUPROFEN
     Dosage: UNK (200MG)
  3. LETROZOLE. [Concomitant]
     Active Substance: LETROZOLE
     Dosage: UNK (2.5MG)
  4. IBRANCE [Suspect]
     Active Substance: PALBOCICLIB
     Indication: CHOLANGIOCARCINOMA
     Dosage: 125 MG, CYCLIC (DAILY 21 DAYS/ TAKE IT AT NIGHT NOW)
     Route: 048
     Dates: start: 20201005
  5. IBRANCE [Suspect]
     Active Substance: PALBOCICLIB
     Indication: MALIGNANT PLEURAL EFFUSION

REACTIONS (5)
  - Fatigue [Unknown]
  - Off label use [Unknown]
  - Decreased appetite [Unknown]
  - Cough [Unknown]
  - Product use in unapproved indication [Unknown]
